FAERS Safety Report 6592995-5 (Version None)
Quarter: 2010Q1

REPORT INFORMATION
  Report Type: 
  Country: None (occurrence: None)
  Receive Date: 20100212
  Receipt Date: 20100204
  Transmission Date: 20100710
  Serious: Yes (Other)
  Sender: FDA-Public Use
  Company Number: 2010SP007423

PATIENT
  Age: 58 Year
  Sex: Male

DRUGS (2)
  1. REMERON [Suspect]
     Indication: DRUG USE FOR UNKNOWN INDICATION
     Dosage: 15 MG;QD;PO
     Route: 048
     Dates: start: 20091201, end: 20100101
  2. LENDORMIN [Concomitant]

REACTIONS (1)
  - RHABDOMYOLYSIS [None]
